FAERS Safety Report 5039161-2 (Version None)
Quarter: 2006Q2

REPORT INFORMATION
  Report Type: 
  Country: None (occurrence: None)
  Receive Date: 20060629
  Receipt Date: 20060511
  Transmission Date: 20061013
  Serious: Yes (Hospitalization)
  Sender: FDA-Public Use
  Company Number: HQWYE336012MAY06

PATIENT
  Sex: Female
  Weight: 55 kg

DRUGS (10)
  1. ENBREL [Suspect]
     Indication: RHEUMATOID ARTHRITIS
     Route: 058
     Dates: start: 20051020, end: 20060506
  2. VOLTAREN [Suspect]
     Indication: RHEUMATOID ARTHRITIS
     Dosage: 2 DF/DAY
     Route: 048
     Dates: start: 20051122, end: 20060506
  3. RHEUMATREX [Suspect]
     Indication: RHEUMATOID ARTHRITIS
     Dosage: 2 MG UNSPECIFIED FREQUENCY
     Route: 048
     Dates: start: 20051122, end: 20060522
  4. NORVASC [Concomitant]
     Indication: HYPERTENSION
     Route: 048
     Dates: start: 20051122, end: 20060522
  5. OMEPRAZOLE [Concomitant]
     Route: 048
     Dates: start: 20051122, end: 20060522
  6. PREDNISOLONE [Concomitant]
     Indication: RHEUMATOID ARTHRITIS
  7. ASPARA-CA [Concomitant]
     Indication: OSTEOPOROSIS
     Dosage: UNSPECIFIED DOSE DAILY
     Route: 048
     Dates: start: 20051122, end: 20060506
  8. ALFAROL [Concomitant]
     Route: 048
     Dates: start: 20051122, end: 20060506
  9. ALENDRONATE SODIUM [Concomitant]
     Indication: OSTEOPOROSIS
     Dosage: 1 DF/DAY
     Route: 048
     Dates: start: 20051122, end: 20060506
  10. MICARDIS [Concomitant]
     Indication: HYPERTENSION
     Route: 048
     Dates: start: 20051122, end: 20060522

REACTIONS (6)
  - BACTERIA STOOL IDENTIFIED [None]
  - BLOOD FOLATE DECREASED [None]
  - GASTROENTERITIS [None]
  - INFECTION IN AN IMMUNOCOMPROMISED HOST [None]
  - MALABSORPTION [None]
  - PANCYTOPENIA [None]
